FAERS Safety Report 18784945 (Version 4)
Quarter: 2021Q3

REPORT INFORMATION
  Report Type: Report from Study
  Country: CO (occurrence: CO)
  Receive Date: 20210125
  Receipt Date: 20210819
  Transmission Date: 20211014
  Serious: Yes (Hospitalization, Other)
  Sender: FDA-Public Use
  Company Number: CO-TAKEDA-2021TUS004638

PATIENT
  Age: 53 Year
  Sex: Male
  Weight: 114 kg

DRUGS (9)
  1. ISONIAZIDE [Concomitant]
     Active Substance: ISONIAZID
     Dosage: 300 MILLIGRAM, QD
     Route: 048
  2. VEDOLIZUMAB [Suspect]
     Active Substance: VEDOLIZUMAB
     Dosage: 300 MILLIGRAM
     Route: 042
     Dates: start: 20210621
  3. INSULIN GLARGINE [Concomitant]
     Active Substance: INSULIN GLARGINE
     Dosage: 20 INTERNATIONAL UNIT
  4. SITAGLIPTIN [Concomitant]
     Active Substance: SITAGLIPTIN
     Dosage: 100 MILLIGRAM, QD
     Route: 048
  5. MESALAZINE [Concomitant]
     Active Substance: MESALAMINE
     Dosage: 4 GRAM
  6. VEDOLIZUMAB [Suspect]
     Active Substance: VEDOLIZUMAB
     Indication: COLITIS ULCERATIVE
     Dosage: 300 MILLIGRAM
     Route: 042
     Dates: start: 20210105
  7. PREDNISOLONE. [Concomitant]
     Active Substance: PREDNISOLONE
     Dosage: 10 MILLIGRAM, QD
     Route: 048
  8. MESALAZINE [Concomitant]
     Active Substance: MESALAMINE
     Dosage: 3 GRAM, QD
     Route: 048
  9. LISPRO INSULIN [Concomitant]
     Active Substance: INSULIN LISPRO
     Dosage: 4 INTERNATIONAL UNIT

REACTIONS (6)
  - Weight increased [Unknown]
  - Abdominal pain [Not Recovered/Not Resolved]
  - Colitis ulcerative [Unknown]
  - Type 2 diabetes mellitus [Unknown]
  - Latent tuberculosis [Not Recovered/Not Resolved]
  - Haematochezia [Not Recovered/Not Resolved]

NARRATIVE: CASE EVENT DATE: 20210112
